FAERS Safety Report 24795499 (Version 2)
Quarter: 2025Q1

REPORT INFORMATION
  Report Type: Report from Study
  Country: CN (occurrence: CN)
  Receive Date: 20241231
  Receipt Date: 20250110
  Transmission Date: 20250408
  Serious: Yes (Other)
  Sender: RIGEL PHARMACEUTICALS
  Company Number: CN-CSTONE PHARMACEUTICALS (SUZHOU) CO., LTD.-2024CN01445

PATIENT
  Age: 71 Year
  Sex: Female

DRUGS (1)
  1. PRALSETINIB [Suspect]
     Active Substance: PRALSETINIB
     Indication: Lung neoplasm
     Dosage: 400 MILLIGRAM, QD
     Route: 048
     Dates: start: 202405, end: 202406

REACTIONS (7)
  - Depressed level of consciousness [Recovering/Resolving]
  - Dementia [Recovering/Resolving]
  - Hypometabolism [Recovering/Resolving]
  - Head discomfort [Recovering/Resolving]
  - Asthenia [Recovering/Resolving]
  - Vertigo [Recovering/Resolving]
  - Swelling face [Recovering/Resolving]

NARRATIVE: CASE EVENT DATE: 20240601
